FAERS Safety Report 24334277 (Version 2)
Quarter: 2025Q1

REPORT INFORMATION
  Report Type: Report from Study
  Country: IT (occurrence: IT)
  Receive Date: 20240918
  Receipt Date: 20250204
  Transmission Date: 20250409
  Serious: Yes (Other)
  Sender: PAREXEL
  Company Number: IT-ZAMBON-202402529COR

PATIENT

DRUGS (2)
  1. FOSFOMYCIN TROMETHAMINE [Suspect]
     Active Substance: FOSFOMYCIN TROMETHAMINE
     Indication: Cystitis
     Route: 048
     Dates: start: 20240105
  2. IBUPROFEN [Suspect]
     Active Substance: IBUPROFEN
     Indication: Cystitis
     Route: 048
     Dates: start: 20240105, end: 20240106

REACTIONS (3)
  - Lip oedema [Recovering/Resolving]
  - Skin reaction [Recovering/Resolving]
  - Off label use [Unknown]

NARRATIVE: CASE EVENT DATE: 20240106
